FAERS Safety Report 6704757-6 (Version None)
Quarter: 2010Q2

REPORT INFORMATION
  Report Type: 
  Country: None (occurrence: None)
  Receive Date: 20100430
  Receipt Date: 20091216
  Transmission Date: 20101027
  Serious: No
  Sender: FDA-Public Use
  Company Number: US-BAUSCH-2009BL006592

PATIENT
  Age: 68 Year
  Sex: Female
  Weight: 58 kg

DRUGS (2)
  1. ALREX [Suspect]
     Indication: ERYTHEMA OF EYELID
     Route: 047
     Dates: start: 20091215
  2. NEOMYCIN + POLYMYXIN B SULFATES + DEXAMETHASONE [Suspect]
     Indication: ERYTHEMA OF EYELID
     Route: 061
     Dates: start: 20091215, end: 20091219

REACTIONS (2)
  - ACCIDENTAL EXPOSURE [None]
  - SWELLING FACE [None]
